FAERS Safety Report 5611724-2 (Version None)
Quarter: 2008Q1

REPORT INFORMATION
  Report Type: 
  Country: None (occurrence: None)
  Receive Date: 20080201
  Receipt Date: 20080130
  Transmission Date: 20080703
  Serious: Yes (Death, Other)
  Sender: FDA-Public Use
  Company Number: GB-MERCK-0801GBR00121

PATIENT
  Age: 94 Year
  Sex: Female
  Weight: 45 kg

DRUGS (18)
  1. ZOCOR [Suspect]
     Indication: TRANSIENT ISCHAEMIC ATTACK
     Route: 048
     Dates: start: 20071204, end: 20071211
  2. AMIODARONE [Concomitant]
     Indication: ATRIAL FIBRILLATION
     Route: 042
     Dates: start: 20071212
  3. BECLOMETHASONE DIPROPIONATE [Concomitant]
     Indication: ASTHMA
     Dates: start: 20050908, end: 20071130
  4. BENDROFLUMETHIAZIDE [Concomitant]
     Indication: HYPERTENSION
     Route: 048
     Dates: start: 20071126, end: 20071205
  5. BISOPROLOL [Concomitant]
     Indication: ATRIAL FIBRILLATION
     Route: 048
     Dates: start: 20071202, end: 20071211
  6. CARBOMER [Concomitant]
     Route: 047
     Dates: start: 20071121, end: 20071130
  7. ACETAMINOPHEN AND CODEINE PHOSPHATE [Concomitant]
     Indication: PAIN
     Route: 048
     Dates: start: 20010531, end: 20071211
  8. DIGOXIN [Concomitant]
     Indication: ATRIAL FIBRILLATION
     Route: 042
     Dates: start: 20071211, end: 20071211
  9. FERROUS SULFATE [Concomitant]
     Indication: ANAEMIA
     Route: 048
     Dates: start: 20071120, end: 20071211
  10. IPRATROPIUM BROMIDE [Concomitant]
     Indication: ASTHMA
     Dates: start: 20071211, end: 20071217
  11. POTASSIUM CHLORIDE AND POLYETHYLENE GLYCOL 3350 AND SODIUM BICARBONATE [Concomitant]
     Indication: CONSTIPATION
     Route: 048
     Dates: start: 20071206, end: 20071211
  12. OMEPRAZOLE [Concomitant]
     Indication: DUODENAL ULCER
     Route: 048
     Dates: start: 20071120, end: 20071130
  13. OMEPRAZOLE [Concomitant]
     Route: 048
     Dates: start: 20071130, end: 20071217
  14. RAMIPRIL [Concomitant]
     Indication: HYPERTENSION
     Route: 048
     Dates: start: 20071022, end: 20071211
  15. ALBUTEROL [Concomitant]
     Indication: ASTHMA
     Dates: start: 20050908, end: 20071211
  16. ALBUTEROL [Concomitant]
     Dates: start: 20071211, end: 20071218
  17. FLUTICASONE PROPIONATE AND SALMETEROL XINAFOATE [Concomitant]
     Indication: ASTHMA
     Dates: start: 20070718, end: 20071211
  18. WARFARIN [Concomitant]
     Indication: ATRIAL FIBRILLATION
     Route: 048
     Dates: start: 20071206, end: 20071211

REACTIONS (6)
  - ALANINE AMINOTRANSFERASE INCREASED [None]
  - BLOOD ALBUMIN DECREASED [None]
  - HEPATIC FAILURE [None]
  - INTERNATIONAL NORMALISED RATIO INCREASED [None]
  - LIVER FUNCTION TEST ABNORMAL [None]
  - PNEUMONIA [None]
